FAERS Safety Report 12365432 (Version 2)
Quarter: 2016Q2

REPORT INFORMATION
  Report Type: Spontaneous
  Country: JP (occurrence: JP)
  Receive Date: 20160512
  Receipt Date: 20160525
  Transmission Date: 20160815
  Serious: Yes (Other)
  Sender: FDA-Public Use
  Company Number: JP-009507513-1605JPN004563

PATIENT

DRUGS (1)
  1. MENESIT TABLETS - 100 [Suspect]
     Active Substance: CARBIDOPA\LEVODOPA
     Dosage: TOTAL DAILY DOSE 650 MG, DIVIDED DOSE FREQUENCY UNKNOWN
     Route: 048

REACTIONS (2)
  - Dysphagia [Unknown]
  - Pneumonia [Unknown]
